FAERS Safety Report 5851111-5 (Version None)
Quarter: 2008Q3

REPORT INFORMATION
  Report Type: 
  Country: None (occurrence: None)
  Receive Date: 20080820
  Receipt Date: 20080815
  Transmission Date: 20090109
  Serious: Yes (Death)
  Sender: FDA-Public Use
  Company Number: A0743374A

PATIENT
  Age: 80 Year
  Sex: Male
  Weight: 78 kg

DRUGS (2)
  1. AVANDAMET [Suspect]
     Route: 048
     Dates: start: 20071226, end: 20080807
  2. INSULIN [Concomitant]
     Dates: start: 20080804, end: 20080807

REACTIONS (1)
  - CEREBROVASCULAR ACCIDENT [None]
